FAERS Safety Report 26096608 (Version 1)
Quarter: 2025Q4

REPORT INFORMATION
  Report Type: Spontaneous
  Country: US (occurrence: US)
  Receive Date: 20251127
  Receipt Date: 20251127
  Transmission Date: 20260118
  Serious: Yes (Hospitalization, Other)
  Sender: ALEXION PHARMACEUTICALS
  Company Number: US-AstraZeneca-CH-01000498AP

PATIENT
  Sex: Female

DRUGS (2)
  1. BREZTRI [Suspect]
     Active Substance: BUDESONIDE\FORMOTEROL\GLYCOPYRROLATE
     Dosage: 160 UNK
     Route: 065
  2. PROLIA [Concomitant]
     Active Substance: DENOSUMAB
     Route: 065

REACTIONS (10)
  - Pneumonia [Unknown]
  - Psychiatric symptom [Unknown]
  - Breast mass [Unknown]
  - Compression fracture [Unknown]
  - Secretion discharge [Unknown]
  - Pain [Unknown]
  - Dyspnoea [Unknown]
  - Multiple fractures [Unknown]
  - Malaise [Unknown]
  - Product dose omission issue [Unknown]
